FAERS Safety Report 8492525-7 (Version None)
Quarter: 2012Q3

REPORT INFORMATION
  Report Type: 
  Country: None (occurrence: None)
  Receive Date: 20120706
  Receipt Date: 20120626
  Transmission Date: 20120928
  Serious: Yes (Other)
  Sender: FDA-Public Use
  Company Number: US-ABBOTT-12P-163-0938530-00

PATIENT
  Sex: Female
  Weight: 63.56 kg

DRUGS (4)
  1. METOPROLOL [Concomitant]
     Indication: HYPERTENSION
     Route: 048
  2. HUMIRA [Suspect]
     Indication: CROHN'S DISEASE
     Dates: start: 20061001
  3. LATANOPROST [Concomitant]
     Indication: SENSATION OF PRESSURE
     Dosage: 1 DROP IN BOTH EYES DAILY
  4. COMBIGAN [Concomitant]
     Indication: GLAUCOMA
     Dosage: 1 DROP DAILY IN BOTH EYES

REACTIONS (4)
  - EYE HAEMORRHAGE [None]
  - INTRAOCULAR PRESSURE INCREASED [None]
  - GLAUCOMA [None]
  - BLINDNESS UNILATERAL [None]
